FAERS Safety Report 9854469 (Version 1)
Quarter: 2014Q1

REPORT INFORMATION
  Report Type: Spontaneous
  Country: US (occurrence: US)
  Receive Date: 20140130
  Receipt Date: 20140130
  Transmission Date: 20141002
  Serious: No
  Sender: FDA-Public Use
  Company Number: US-BIOGENIDEC-2013BI066819

PATIENT
  Age: 47 Year
  Sex: Female

DRUGS (8)
  1. TECFIDERA [Suspect]
     Indication: MULTIPLE SCLEROSIS
     Route: 048
  2. TECFIDERA [Suspect]
     Indication: MULTIPLE SCLEROSIS
     Route: 048
     Dates: start: 20130524
  3. CENTRUM [Concomitant]
  4. XANAX [Concomitant]
  5. ORTHO-NOVUM [Concomitant]
  6. ATENOLOL [Concomitant]
  7. NEXIUM [Concomitant]
  8. MICARDIS HCT [Concomitant]

REACTIONS (4)
  - Urticaria [Unknown]
  - Dry mouth [Unknown]
  - Miliaria [Unknown]
  - Rash [Unknown]
